FAERS Safety Report 21220464 (Version 6)
Quarter: 2023Q2

REPORT INFORMATION
  Report Type: Report from Study
  Country: US (occurrence: US)
  Receive Date: 20220817
  Receipt Date: 20230619
  Transmission Date: 20230721
  Serious: Yes (Other)
  Sender: FDA-Public Use
  Company Number: US-NOVARTISTESTPH-NVSC2022US185784

PATIENT
  Sex: Female

DRUGS (2)
  1. PIQRAY [Suspect]
     Active Substance: ALPELISIB
     Indication: Product used for unknown indication
     Dosage: UNK
     Route: 048
  2. BACTRIM [Suspect]
     Active Substance: SULFAMETHOXAZOLE\TRIMETHOPRIM
     Indication: Product used for unknown indication
     Dosage: UNK
     Route: 065

REACTIONS (11)
  - Breast necrosis [Unknown]
  - Breast abscess [Unknown]
  - Wound [Recovered/Resolved with Sequelae]
  - COVID-19 [Unknown]
  - Temperature intolerance [Unknown]
  - Illness [Unknown]
  - Cerebral disorder [Unknown]
  - Fatigue [Unknown]
  - Blood glucose increased [Unknown]
  - Diarrhoea [Unknown]
  - Rash macular [Unknown]
